FAERS Safety Report 4950865-X (Version None)
Quarter: 2006Q1

REPORT INFORMATION
  Report Type: 
  Country: None (occurrence: None)
  Receive Date: 20060322
  Receipt Date: 20060310
  Transmission Date: 20060701
  Serious: Yes (Other)
  Sender: FDA-Public Use
  Company Number: GB-BRISTOL-MYERS SQUIBB COMPANY-13310172

PATIENT
  Age: 2 Month

DRUGS (1)
  1. NYSTATIN [Suspect]
     Dosage: DISPENSED 2.5 ML 4 TIMES DAILY INSTEAD OF 1 ML 4 TIMES DAILY

REACTIONS (3)
  - MALAISE [None]
  - MEDICATION ERROR [None]
  - OVERDOSE [None]
